FAERS Safety Report 13931944 (Version 1)
Quarter: 2017Q3

REPORT INFORMATION
  Report Type: Spontaneous
  Country: US (occurrence: US)
  Receive Date: 20170904
  Receipt Date: 20170904
  Transmission Date: 20171127
  Serious: Yes (Life-Threatening, Hospitalization)
  Sender: FDA-Public Use
  Company Number: US-TORRENT-00003321

PATIENT
  Age: 16 Year
  Sex: Female

DRUGS (1)
  1. AMLODIPINE [Suspect]
     Active Substance: AMLODIPINE BESYLATE

REACTIONS (9)
  - Tachycardia [Recovered/Resolved]
  - Cardiogenic shock [Recovered/Resolved]
  - Coma scale abnormal [Recovered/Resolved]
  - Troponin increased [Recovered/Resolved]
  - Hypotension [Recovered/Resolved]
  - Acute kidney injury [Recovered/Resolved]
  - Overdose [Recovered/Resolved]
  - Blood lactic acid increased [Recovered/Resolved]
  - Posterior tibial nerve injury [Unknown]
